FAERS Safety Report 13613357 (Version 1)
Quarter: 2017Q2

REPORT INFORMATION
  Report Type: Report from Study
  Country: RU (occurrence: RU)
  Receive Date: 20170605
  Receipt Date: 20170605
  Transmission Date: 20170830
  Serious: Yes (Other)
  Sender: FDA-Public Use
  Company Number: RU-TEVA-774142ISR

PATIENT
  Age: 11 Year
  Sex: Male
  Weight: 68.6 kg

DRUGS (17)
  1. IFOSFAMIDE. [Suspect]
     Active Substance: IFOSFAMIDE
     Dosage: IN CYCLE 1
  2. DOXORUBICIN [Suspect]
     Active Substance: DOXORUBICIN
     Dosage: IN CYCLE 2
  3. ETOPOSIDE. [Suspect]
     Active Substance: ETOPOSIDE
     Dosage: IN CYCLE 1
  4. IFOSFAMIDE. [Suspect]
     Active Substance: IFOSFAMIDE
     Dosage: IN CYCLE 2
  5. VINCRISTINE [Suspect]
     Active Substance: VINCRISTINE
     Dosage: IN CYCLE 1
  6. VINCRISTINE [Suspect]
     Active Substance: VINCRISTINE
     Dosage: IN CYCLE 3
  7. VINCRISTINE [Suspect]
     Active Substance: VINCRISTINE
     Dosage: IN CYCLE 4
  8. DOXORUBICIN [Suspect]
     Active Substance: DOXORUBICIN
     Dosage: IN CYCLE 3
  9. ETOPOSIDE. [Suspect]
     Active Substance: ETOPOSIDE
     Dosage: IN CYCLE 4
  10. IFOSFAMIDE. [Suspect]
     Active Substance: IFOSFAMIDE
     Dosage: IN CYCLE 4
  11. ETOPOSIDE. [Suspect]
     Active Substance: ETOPOSIDE
     Dosage: IN CYCLE 2
  12. DOXORUBICIN [Suspect]
     Active Substance: DOXORUBICIN
     Dosage: IN CYCLE 4
  13. ETOPOSIDE. [Suspect]
     Active Substance: ETOPOSIDE
     Dosage: IN CYCLE 3
  14. IFOSFAMIDE. [Suspect]
     Active Substance: IFOSFAMIDE
     Dosage: IN CYCLE 3
  15. LONQUEX [Suspect]
     Active Substance: LIPEGFILGRASTIM
     Indication: NEUTROPENIA
     Dosage: DOSE OF CYCLE 4 WAS GIVEN ON 02-APR-2017
     Route: 058
     Dates: start: 20170120
  16. VINCRISTINE [Suspect]
     Active Substance: VINCRISTINE
     Dosage: IN CYCLE 2
  17. DOXORUBICIN [Suspect]
     Active Substance: DOXORUBICIN
     Dosage: IN CYCLE 1

REACTIONS (3)
  - Thrombocytopenia [Recovered/Resolved]
  - Lymphopenia [Recovered/Resolved]
  - Anaemia [Recovered/Resolved]

NARRATIVE: CASE EVENT DATE: 20170401
